FAERS Safety Report 15651221 (Version 2)
Quarter: 2018Q4

REPORT INFORMATION
  Report Type: Spontaneous
  Country: GB (occurrence: GB)
  Receive Date: 20181123
  Receipt Date: 20181124
  Transmission Date: 20190205
  Serious: Yes (Other)
  Sender: FDA-Public Use
  Company Number: GB-TEVA-2018-GB-977398

PATIENT
  Age: 51 Year
  Sex: Female
  Weight: 83 kg

DRUGS (9)
  1. LANSOPRAZOLE. [Concomitant]
     Active Substance: LANSOPRAZOLE
     Dosage: 1 DOSAGE FORMS DAILY;
     Route: 065
     Dates: start: 20180323
  2. CHLORPHENAMINE [Concomitant]
     Active Substance: CHLORPHENIRAMINE MALEATE
     Dosage: TAKE ONE EVERY 4-6 HOURS.
     Route: 065
     Dates: start: 20180323
  3. CLINDAMYCIN. [Concomitant]
     Active Substance: CLINDAMYCIN
     Dosage: 1 DOSAGE FORMS DAILY; APPLY
     Route: 065
     Dates: start: 20180806, end: 20180903
  4. NITROFURANTOIN. [Suspect]
     Active Substance: NITROFURANTOIN
     Indication: URINARY TRACT INFECTION
     Dosage: 200 MILLIGRAM DAILY; FOR 3 DAYS
     Route: 065
     Dates: start: 20181022
  5. FLUTICASONE PROPIONATE. [Concomitant]
     Active Substance: FLUTICASONE PROPIONATE
     Dosage: USE AS DIRECTED.
     Route: 065
     Dates: start: 20180323
  6. HYDROCORTISONE. [Concomitant]
     Active Substance: HYDROCORTISONE
     Dosage: 3 DOSAGE FORMS DAILY; APPLY SPARINGLY
     Route: 065
     Dates: start: 20180323
  7. BENDROFLUMETHIAZIDE [Concomitant]
     Active Substance: BENDROFLUMETHIAZIDE
     Indication: DIURETIC THERAPY
     Dosage: 1 DOSAGE FORMS DAILY; MORNING
     Route: 065
     Dates: start: 20180323
  8. CETIRIZINE [Concomitant]
     Active Substance: CETIRIZINE HYDROCHLORIDE
     Indication: ANTIALLERGIC THERAPY
     Dosage: 1 DOSAGE FORMS DAILY;
     Route: 065
     Dates: start: 20180323
  9. BISACODYL. [Concomitant]
     Active Substance: BISACODYL
     Dosage: USE AS DIRECTED
     Route: 065
     Dates: start: 20180323

REACTIONS (2)
  - Rash [Recovering/Resolving]
  - Chest discomfort [Recovered/Resolved]

NARRATIVE: CASE EVENT DATE: 20181024
